FAERS Safety Report 7383171-7 (Version None)
Quarter: 2011Q1

REPORT INFORMATION
  Report Type: 
  Country: None (occurrence: None)
  Receive Date: 20110330
  Receipt Date: 20110322
  Transmission Date: 20110831
  Serious: Yes (Death, Hospitalization)
  Sender: FDA-Public Use
  Company Number: DE-SANOFI-AVENTIS-2011SA017054

PATIENT
  Age: 90 Year
  Sex: Female
  Weight: 60 kg

DRUGS (1)
  1. CLEXANE [Suspect]
     Indication: THROMBOSIS
     Route: 065
     Dates: start: 20110101, end: 20110101

REACTIONS (3)
  - CONDITION AGGRAVATED [None]
  - HAEMATOMA [None]
  - DEATH [None]
